FAERS Safety Report 7434318-5 (Version None)
Quarter: 2011Q2

REPORT INFORMATION
  Report Type: 
  Country: None (occurrence: None)
  Receive Date: 20110425
  Receipt Date: 20110420
  Transmission Date: 20111010
  Serious: No
  Sender: FDA-Public Use
  Company Number: US-PFIZER INC-2011070588

PATIENT
  Sex: Female
  Weight: 48.526 kg

DRUGS (9)
  1. PRISTIQ [Suspect]
     Indication: DEPRESSION
     Dosage: UNK
     Route: 048
  2. ISOSORBIDE MONONITRATE [Concomitant]
     Dosage: UNK
  3. LAMICTAL [Concomitant]
     Indication: CONVULSION
     Dosage: 150 MG, TWO OR THREE TIMES A DAY
     Route: 048
  4. ROSUVASTATIN CALCIUM [Suspect]
     Dosage: UNK
  5. ZANAFLEX [Concomitant]
     Indication: MUSCLE RELAXANT THERAPY
     Dosage: UNK
  6. HYDROCHLOROTHIAZIDE [Concomitant]
     Indication: HYPERTENSION
     Dosage: UNK
  7. TOPROL-XL [Concomitant]
     Indication: CARDIAC DISORDER
     Dosage: UNK
     Route: 048
  8. PLAVIX [Concomitant]
     Indication: ANTICOAGULANT THERAPY
     Dosage: UNK
  9. PRISTIQ [Suspect]
     Dosage: 100 MG, DAILY
     Route: 048
     Dates: end: 20110301

REACTIONS (13)
  - BODY TEMPERATURE FLUCTUATION [None]
  - CRYING [None]
  - IRRITABILITY [None]
  - INFLUENZA [None]
  - ABNORMAL DREAMS [None]
  - NIGHTMARE [None]
  - NERVOUSNESS [None]
  - DEPRESSION [None]
  - ANGER [None]
  - DISCOMFORT [None]
  - HOT FLUSH [None]
  - FEELING COLD [None]
  - GASTRIC DISORDER [None]
